FAERS Safety Report 18015701 (Version 2)
Quarter: 2020Q3

REPORT INFORMATION
  Report Type: Spontaneous
  Country: JP (occurrence: JP)
  Receive Date: 20200713
  Receipt Date: 20200930
  Transmission Date: 20201103
  Serious: No
  Sender: FDA-Public Use
  Company Number: JP-ASTRAZENECA-2020SE53584

PATIENT
  Age: 63 Year
  Sex: Female
  Weight: 40 kg

DRUGS (1)
  1. NEXIUM [Suspect]
     Active Substance: ESOMEPRAZOLE MAGNESIUM
     Indication: GASTROOESOPHAGEAL REFLUX DISEASE
     Route: 048
     Dates: start: 20200414, end: 20200414

REACTIONS (9)
  - Tongue discolouration [Recovering/Resolving]
  - Gastric mucosal hypertrophy [Unknown]
  - Anxiety [Unknown]
  - Tongue disorder [Recovering/Resolving]
  - Tongue geographic [Unknown]
  - Hepatic cyst [Unknown]
  - Thyroid calcification [Unknown]
  - Breast mass [Unknown]
  - Dysgeusia [Unknown]

NARRATIVE: CASE EVENT DATE: 20200414
